FAERS Safety Report 9252813 (Version 2)
Quarter: 2013Q2

REPORT INFORMATION
  Report Type: Spontaneous
  Country: US (occurrence: US)
  Receive Date: 20130424
  Receipt Date: 20130520
  Transmission Date: 20140414
  Serious: Yes (Other)
  Sender: FDA-Public Use
  Company Number: US-BAYER-2013-051131

PATIENT
  Age: 25 Year
  Sex: Female

DRUGS (1)
  1. MIRENA [Suspect]
     Indication: CONTRACEPTION
     Dosage: 20 ?G/D, CONT
     Route: 015
     Dates: start: 201208, end: 20130417

REACTIONS (5)
  - Device expulsion [Recovered/Resolved]
  - Endometriosis [Recovered/Resolved]
  - Pelvic pain [Recovered/Resolved]
  - Pelvic adhesions [Recovered/Resolved]
  - Dyspareunia [Recovered/Resolved]
